FAERS Safety Report 17403910 (Version 1)
Quarter: 2020Q1

REPORT INFORMATION
  Report Type: Spontaneous
  Country: US (occurrence: US)
  Receive Date: 20200211
  Receipt Date: 20200211
  Transmission Date: 20200409
  Serious: No
  Sender: FDA-Public Use
  Company Number: US-009507513-1912USA012144

PATIENT

DRUGS (1)
  1. PIFELTRO [Suspect]
     Active Substance: DORAVIRINE
     Indication: HIV INFECTION
     Dosage: 100 MILLIGRAM, QD
     Route: 048

REACTIONS (1)
  - Dermatitis allergic [Not Recovered/Not Resolved]
